FAERS Safety Report 5928237-0 (Version None)
Quarter: 2008Q4

REPORT INFORMATION
  Report Type: 
  Country: None (occurrence: None)
  Receive Date: 20081023
  Receipt Date: 20081014
  Transmission Date: 20090506
  Serious: Yes (Other)
  Sender: FDA-Public Use
  Company Number: AT-ELI_LILLY_AND_COMPANY-AT200809003157

PATIENT
  Age: 55 Year
  Sex: Female
  Weight: 59.5 kg

DRUGS (5)
  1. FORTEO [Suspect]
     Indication: OSTEOPOROSIS
     Dosage: 20 UG, DAILY (1/D)
     Route: 058
     Dates: start: 20071215
  2. EUTHYROX [Concomitant]
     Indication: HYPOTHYROIDISM
     Dosage: 25 UG, DAILY (1/D)
     Route: 048
     Dates: start: 19880101
  3. HYDERGINE [Concomitant]
     Indication: MIGRAINE
     Dosage: 6 MG, DAILY (1/D)
     Route: 048
     Dates: start: 20070601
  4. CONCOR /00802602/ [Concomitant]
     Indication: HYPERTENSION
     Dosage: 5 MG, DAILY (1/D)
     Route: 048
     Dates: start: 20071201
  5. SIMVASTATIN [Concomitant]
     Indication: HYPERCHOLESTEROLAEMIA
     Dosage: 10 MG, AS NEEDED
     Route: 048
     Dates: start: 20071201

REACTIONS (1)
  - ARRHYTHMIA [None]
